FAERS Safety Report 22705624 (Version 2)
Quarter: 2023Q4

REPORT INFORMATION
  Report Type: Report from Study
  Country: US (occurrence: US)
  Receive Date: 20230714
  Receipt Date: 20231027
  Transmission Date: 20240109
  Serious: Yes (Hospitalization)
  Sender: FDA-Public Use
  Company Number: US-ABBVIE-5326997

PATIENT
  Sex: Male

DRUGS (2)
  1. VENCLEXTA [Suspect]
     Active Substance: VENETOCLAX
     Indication: Myelodysplastic syndrome
     Dosage: FORM STRENGTH: 100MG,TAKE 1 TABLET BY MOUTH DAILY
     Route: 048
  2. VENCLEXTA [Suspect]
     Active Substance: VENETOCLAX
     Indication: Myelodysplastic syndrome
     Dosage: TAKE 2 TABLET(S) BY MOUTH EVERY DAY, FORM STRENGTH 100 MILLIGRAM
     Route: 048

REACTIONS (2)
  - Overdose [Unknown]
  - Off label use [Unknown]
